FAERS Safety Report 18548993 (Version 2)
Quarter: 2024Q3

REPORT INFORMATION
  Report Type: Other
  Country: CA (occurrence: CA)
  Receive Date: 20201126
  Receipt Date: 20240807
  Transmission Date: 20241016
  Serious: Yes (Hospitalization)
  Sender: APOTEX
  Company Number: CA-APOTEX-2020AP022154

PATIENT
  Age: 64 Year
  Sex: Female

DRUGS (30)
  1. GEMCITABINE [Suspect]
     Active Substance: GEMCITABINE
     Indication: Pancreatic carcinoma
     Dosage: 1482 MILLIGRAM 1 EVERY 4 WEEKS/ CYCLICAL
     Route: 042
  2. GEMCITABINE [Suspect]
     Active Substance: GEMCITABINE
     Dosage: 1482 MILLIGRAM
     Route: 041
  3. ABRAXANE [Suspect]
     Active Substance: PACLITAXEL
     Indication: Pancreatic carcinoma
     Dosage: 185 MILLIGRAM 1 EVERY 4 WEEKS/ CYCLICAL
     Route: 042
  4. ABRAXANE [Suspect]
     Active Substance: PACLITAXEL
     Dosage: 185 MILLIGRAM
     Route: 041
  5. DURVALUMAB [Suspect]
     Active Substance: DURVALUMAB
     Indication: Pancreatic carcinoma
     Dosage: 1500 MILLIGRAM 1 EVERY 4 WEEKS/ CYCLICAL
     Route: 042
  6. DURVALUMAB [Suspect]
     Active Substance: DURVALUMAB
     Dosage: 1500 MILLIGRAM
     Route: 041
  7. TREMELIMUMAB [Suspect]
     Active Substance: TREMELIMUMAB
     Indication: Pancreatic carcinoma
     Dosage: 75 MILLIGRAM 1 EVERY 4 WEEKS/ CYCLICAL
     Route: 042
  8. TREMELIMUMAB [Suspect]
     Active Substance: TREMELIMUMAB
     Dosage: 75 MILLIGRAM
     Route: 041
  9. ACETAMINOPHEN [Concomitant]
     Active Substance: ACETAMINOPHEN
     Indication: Headache
     Dosage: UNK
     Route: 065
  10. ALLOPURINOL [Concomitant]
     Active Substance: ALLOPURINOL
     Indication: Hyperuricaemia
     Dosage: UNK
     Route: 065
  11. ALLOPURINOL [Concomitant]
     Active Substance: ALLOPURINOL
     Indication: Gout
  12. ALUMINUM HYDROXIDE\DIMETHICONE\MAGNESIUM HYDROXIDE [Concomitant]
     Active Substance: ALUMINUM HYDROXIDE\DIMETHICONE\MAGNESIUM HYDROXIDE
     Indication: Dyspepsia
     Dosage: UNK
     Route: 065
  13. ATORVASTATIN CALCIUM [Concomitant]
     Active Substance: ATORVASTATIN CALCIUM
     Indication: Hypercholesterolaemia
     Dosage: UNK
     Route: 065
  14. CLONAZEPAM [Concomitant]
     Active Substance: CLONAZEPAM
     Indication: Insomnia
     Dosage: UNK
     Route: 065
  15. ENOXAPARIN SODIUM [Concomitant]
     Active Substance: ENOXAPARIN SODIUM
     Indication: Thrombosis
     Dosage: UNK
     Route: 065
  16. FUROSEMIDE [Concomitant]
     Active Substance: FUROSEMIDE
     Indication: Polyuria
     Dosage: UNK
     Route: 065
  17. IMODIUM [Concomitant]
     Active Substance: LOPERAMIDE HYDROCHLORIDE
     Indication: Diarrhoea
     Dosage: UNK
     Route: 065
  18. IRBESARTAN [Concomitant]
     Active Substance: IRBESARTAN
     Indication: Hypertension
     Dosage: UNK
     Route: 065
  19. KEFLEX [Concomitant]
     Active Substance: CEPHALEXIN
     Indication: Antibiotic prophylaxis
     Dosage: UNK
     Route: 065
  20. LOPERAMIDE OXIDE [Concomitant]
     Active Substance: LOPERAMIDE OXIDE
     Indication: Diarrhoea
     Dosage: UNK
     Route: 065
  21. LORAZEPAM [Concomitant]
     Active Substance: LORAZEPAM
     Indication: Insomnia
     Dosage: UNK
     Route: 065
  22. MEGESTROL [Concomitant]
     Active Substance: MEGESTROL
     Indication: Decreased appetite
     Dosage: UNK
     Route: 065
  23. METFORMIN [Concomitant]
     Active Substance: METFORMIN HYDROCHLORIDE
     Indication: Diabetes mellitus
     Dosage: UNK
     Route: 065
  24. METOCLOPRAMIDE [Concomitant]
     Active Substance: METOCLOPRAMIDE
     Indication: Prophylaxis of nausea and vomiting
     Dosage: UNK
     Route: 065
  25. MORPHINE SULFATE [Concomitant]
     Active Substance: MORPHINE SULFATE
     Indication: Abdominal pain
     Dosage: UNK
     Route: 065
  26. NYSTATIN\ZINC OXIDE [Concomitant]
     Active Substance: NYSTATIN\ZINC OXIDE
     Indication: Antifungal treatment
     Dosage: UNK
     Route: 065
  27. PANCREATIN [Concomitant]
     Active Substance: PANCRELIPASE
     Indication: Dyspepsia
     Dosage: UNK
     Route: 065
  28. SOTALOL [Concomitant]
     Active Substance: SOTALOL
     Indication: Arrhythmia
     Dosage: UNK, (THERAPY DURATION: 366 UNIT UNSECIFIED)
     Route: 065
  29. ZOPICLONE [Concomitant]
     Active Substance: ZOPICLONE
     Indication: Insomnia
     Dosage: UNK
     Route: 065
  30. ALUMINIUM HYDROXIDE;DIMETICONE;MAGNESIUM HYDROXIDE [Concomitant]
     Indication: Dyspepsia
     Dosage: UNK
     Route: 065

REACTIONS (4)
  - Skin infection [Recovered/Resolved]
  - Pruritus [Recovered/Resolved]
  - Localised oedema [Recovered/Resolved]
  - Oedema peripheral [Recovered/Resolved]
